FAERS Safety Report 25510704 (Version 1)
Quarter: 2025Q3

REPORT INFORMATION
  Report Type: Spontaneous
  Country: US (occurrence: None)
  Receive Date: 20250703
  Receipt Date: 20250703
  Transmission Date: 20251021
  Serious: Yes (Life-Threatening, Other)
  Sender: FDA-CTU
  Company Number: None

PATIENT
  Age: 28 Year
  Sex: Male
  Weight: 76.5 kg

DRUGS (3)
  1. .DELTA.9-TETRAHYDROCANNABINOL\HERBALS [Suspect]
     Active Substance: .DELTA.9-TETRAHYDROCANNABINOL\HERBALS
     Indication: Substance use
     Route: 055
     Dates: start: 20250701, end: 20250701
  2. ZOLOFT [Concomitant]
     Active Substance: SERTRALINE HYDROCHLORIDE
  3. VRAYLAR [Concomitant]
     Active Substance: CARIPRAZINE

REACTIONS (17)
  - Disorientation [None]
  - Nightmare [None]
  - Aggression [None]
  - Aggression [None]
  - Delusional perception [None]
  - Impulsive behaviour [None]
  - Incoherent [None]
  - Disorganised speech [None]
  - Respiratory depression [None]
  - Hypopnoea [None]
  - Slow response to stimuli [None]
  - Tachycardia [None]
  - Hypoxia [None]
  - Speech disorder [None]
  - Accidental overdose [None]
  - Cardiovascular disorder [None]
  - Drug screen positive [None]

NARRATIVE: CASE EVENT DATE: 20250701
